FAERS Safety Report 6053686-2 (Version None)
Quarter: 2009Q1

REPORT INFORMATION
  Report Type: 
  Country: None (occurrence: None)
  Receive Date: 20090122
  Receipt Date: 20090113
  Transmission Date: 20090719
  Serious: Yes (Hospitalization)
  Sender: FDA-Public Use
  Company Number: 2009S1000015

PATIENT
  Age: 82 Year
  Sex: Male

DRUGS (6)
  1. CUBICIN [Suspect]
     Indication: BACTERAEMIA
     Dosage: 500 MG;Q48H;IV
     Route: 042
     Dates: start: 20081209, end: 20081216
  2. MEROPENEM [Concomitant]
  3. COLISTIN SULFATE [Concomitant]
  4. OMEPRAZOLE [Concomitant]
  5. ENOXAPARIN SODIUM [Concomitant]
  6. FUROSEMIDE [Concomitant]

REACTIONS (2)
  - ANAEMIA [None]
  - LEUKOPENIA [None]
